FAERS Safety Report 5058105-0 (Version None)
Quarter: 2006Q3

REPORT INFORMATION
  Report Type: 
  Country: None (occurrence: None)
  Receive Date: 20060721
  Receipt Date: 20060719
  Transmission Date: 20061208
  Serious: Yes (Hospitalization)
  Sender: FDA-Public Use
  Company Number: US-GLAXOSMITHKLINE-A0612800A

PATIENT
  Age: 75 Year
  Sex: Female

DRUGS (5)
  1. PAXIL [Suspect]
     Indication: PANIC DISORDER
     Dosage: 10MG PER DAY
     Route: 048
  2. ATIVAN [Concomitant]
  3. SYNTHROID [Concomitant]
  4. CRESTOR [Concomitant]
  5. ASPIRIN [Concomitant]

REACTIONS (10)
  - ANXIETY [None]
  - BALANCE DISORDER [None]
  - CONFUSIONAL STATE [None]
  - DEHYDRATION [None]
  - DRUG WITHDRAWAL SYNDROME [None]
  - FEELING HOT [None]
  - HEADACHE [None]
  - MUSCULAR WEAKNESS [None]
  - RASH [None]
  - TREMOR [None]
